FAERS Safety Report 6237075-3 (Version None)
Quarter: 2009Q2

REPORT INFORMATION
  Report Type: 
  Country: None (occurrence: None)
  Receive Date: 20090619
  Receipt Date: 20090326
  Transmission Date: 20091009
  Serious: No
  Sender: FDA-Public Use
  Company Number: US-ASTRAZENECA-2009UW07716

PATIENT
  Age: 61 Year
  Sex: Male

DRUGS (8)
  1. SYMBICORT [Suspect]
     Route: 055
     Dates: start: 20080630
  2. FLUTICASONE, SALMETEROL [Suspect]
     Indication: CHRONIC OBSTRUCTIVE PULMONARY DISEASE
     Dosage: 2 PUFFS DAILY
     Route: 055
     Dates: start: 20010101
  3. TIOTROPIUM [Concomitant]
  4. SALBUTAMOL SULFATE [Concomitant]
  5. OMEPRAZOLE [Concomitant]
     Route: 048
  6. TERAZOSIN HCL [Concomitant]
  7. FLUTICASONE PROPIONATE [Concomitant]
  8. MULTI-VITAMIN [Concomitant]

REACTIONS (4)
  - DYSPNOEA [None]
  - HYPERSENSITIVITY [None]
  - PHARYNGEAL OEDEMA [None]
  - RASH MACULAR [None]
